FAERS Safety Report 8292708 (Version 3)
Quarter: 2012Q4

REPORT INFORMATION
  Report Type: 
  Country: CA (occurrence: CA)
  Receive Date: 20111215
  Receipt Date: 20121011
  Transmission Date: 20130627
  Serious: Yes (Other)
  Sender: FDA-Public Use
  Company Number: PHHY2011CA41876

PATIENT
  Sex: Female

DRUGS (2)
  1. SANDOSTATIN LAR [Suspect]
     Indication: NEUROENDOCRINE TUMOUR
     Dosage: 30 mg, every four weeks
     Route: 030
     Dates: start: 20110420
  2. AFINITOR [Suspect]
     Indication: NEUROENDOCRINE TUMOUR
     Dosage: 5 mg, everyday
     Route: 048
     Dates: start: 20110623

REACTIONS (5)
  - Tumour necrosis [Unknown]
  - Bile duct cancer [Unknown]
  - Oedema peripheral [Recovered/Resolved]
  - Fatigue [Not Recovered/Not Resolved]
  - Blood bilirubin abnormal [Recovering/Resolving]
